FAERS Safety Report 18268385 (Version 1)
Quarter: 2020Q3

REPORT INFORMATION
  Report Type: Spontaneous
  Country: US (occurrence: US)
  Receive Date: 20200915
  Receipt Date: 20200915
  Transmission Date: 20201103
  Serious: Yes (Other)
  Sender: FDA-Public Use
  Company Number: US-PFIZER INC-2020353723

PATIENT

DRUGS (1)
  1. CHANTIX [Suspect]
     Active Substance: VARENICLINE TARTRATE
     Indication: SMOKING CESSATION THERAPY
     Dosage: 1 DF A DAY AFTER BREAKFAST

REACTIONS (8)
  - Pulmonary congestion [Unknown]
  - Abnormal dreams [Unknown]
  - Chronic obstructive pulmonary disease [Unknown]
  - Hair colour changes [Unknown]
  - Energy increased [Unknown]
  - Productive cough [Unknown]
  - Nausea [Unknown]
  - Increased appetite [Unknown]
